FAERS Safety Report 6632720-2 (Version None)
Quarter: 2010Q1

REPORT INFORMATION
  Report Type: 
  Country: None (occurrence: None)
  Receive Date: 20100312
  Receipt Date: 20100309
  Transmission Date: 20100710
  Serious: Yes (Other)
  Sender: FDA-Public Use
  Company Number: US-ELI_LILLY_AND_COMPANY-US201003002439

PATIENT
  Sex: Male

DRUGS (4)
  1. HUMALOG [Suspect]
     Dosage: 10 U, EACH MORNING
     Dates: start: 20000101
  2. HUMALOG [Suspect]
     Dosage: 8 U, EACH EVENING
     Dates: start: 20000101
  3. HUMULIN N [Suspect]
     Dosage: 22 U, EACH MORNING
     Dates: start: 19780101
  4. HUMULIN N [Suspect]
     Dosage: 12 U, EACH EVENING
     Dates: start: 19780101

REACTIONS (6)
  - BLOOD GLUCOSE INCREASED [None]
  - CERUMEN IMPACTION [None]
  - DRUG INEFFECTIVE [None]
  - HYPOACUSIS [None]
  - RETINAL DETACHMENT [None]
  - VISUAL ACUITY REDUCED [None]
